FAERS Safety Report 8298447-9 (Version None)
Quarter: 2012Q2

REPORT INFORMATION
  Report Type: 
  Country: None (occurrence: None)
  Receive Date: 20120417
  Receipt Date: 20120402
  Transmission Date: 20120825
  Serious: Yes (Hospitalization, Other)
  Sender: FDA-Public Use
  Company Number: 2012P1009408

PATIENT
  Age: 73 Year
  Sex: Male
  Weight: 92.0802 kg

DRUGS (5)
  1. KLOR-CON [Concomitant]
  2. WARFARIN SODIUM [Suspect]
     Indication: ANTICOAGULANT THERAPY
     Dosage: 5 MG;QD
     Dates: start: 19980101
  3. LASIX [Concomitant]
  4. ENALAPRIL MALEATE [Concomitant]
  5. CARVEDILOL [Concomitant]

REACTIONS (3)
  - INTERNATIONAL NORMALISED RATIO INCREASED [None]
  - CATARACT [None]
  - HYPOTHYROIDISM [None]
